FAERS Safety Report 14353312 (Version 3)
Quarter: 2018Q2

REPORT INFORMATION
  Report Type: Report from Study
  Country: US (occurrence: US)
  Receive Date: 20180105
  Receipt Date: 20180510
  Transmission Date: 20180711
  Serious: Yes (Other)
  Sender: FDA-Public Use
  Company Number: US-CIPLA (EU) LIMITED-2017US30335

PATIENT

DRUGS (1)
  1. GEMCITABINE [Suspect]
     Active Substance: GEMCITABINE\GEMCITABINE HYDROCHLORIDE
     Indication: PANCREATIC CARCINOMA METASTATIC
     Dosage: UNK
     Route: 065

REACTIONS (2)
  - Treatment failure [Unknown]
  - Refractory cancer [Unknown]
